FAERS Safety Report 18755138 (Version 1)
Quarter: 2021Q1

REPORT INFORMATION
  Report Type: Spontaneous
  Country: US (occurrence: US)
  Receive Date: 20210118
  Receipt Date: 20210118
  Transmission Date: 20210419
  Serious: Yes (Other)
  Sender: FDA-Public Use
  Company Number: None

PATIENT
  Age: 67 Day
  Sex: Male
  Weight: 99.5 kg

DRUGS (1)
  1. BAMLANIVIMAB. [Suspect]
     Active Substance: BAMLANIVIMAB
     Indication: COVID-19
     Dosage: ?          OTHER FREQUENCY:ONCE;?
     Route: 041
     Dates: start: 20210104, end: 20210104

REACTIONS (6)
  - Malaise [None]
  - Hyperhidrosis [None]
  - Loss of consciousness [None]
  - Blood pressure decreased [None]
  - Electrocardiogram QT prolonged [None]
  - Infusion related reaction [None]

NARRATIVE: CASE EVENT DATE: 20210104
